FAERS Safety Report 24235898 (Version 1)
Quarter: 2024Q3

REPORT INFORMATION
  Report Type: Spontaneous
  Country: FR (occurrence: FR)
  Receive Date: 20240822
  Receipt Date: 20240822
  Transmission Date: 20241017
  Serious: Yes (Other)
  Sender: CSL BEHRING
  Company Number: FR-TEO-20241934

PATIENT
  Age: 21 Year
  Sex: Male

DRUGS (13)
  1. PRIVIGEN [Suspect]
     Active Substance: HUMAN IMMUNOGLOBULIN G
     Route: 065
  2. NEFOPAM [Concomitant]
     Active Substance: NEFOPAM
     Route: 065
  3. OXAZEPAM [Suspect]
     Active Substance: OXAZEPAM
     Dosage: 10 MG AS NECCESSARY
     Route: 065
  4. PRAZOSIN [Suspect]
     Active Substance: PRAZOSIN
     Dosage: IN THE EVENING
     Route: 065
  5. AMITRIPTYLINE HYDROCHLORIDE [Concomitant]
     Active Substance: AMITRIPTYLINE HYDROCHLORIDE
     Dosage: 40 MG/ML SOLUTION BUVABLE
     Route: 065
  6. HUMALOG [Suspect]
     Active Substance: INSULIN LISPRO
     Route: 065
  7. CYAMEMAZINE [Suspect]
     Active Substance: CYAMEMAZINE
     Dosage: IN THE EVENING
     Route: 065
  8. AMITRIPTYLINE HYDROCHLORIDE [Suspect]
     Active Substance: AMITRIPTYLINE HYDROCHLORIDE
     Dosage: IN THE EVENING
     Route: 048
     Dates: start: 20240722, end: 20240722
  9. AMITRIPTYLINE HYDROCHLORIDE [Suspect]
     Active Substance: AMITRIPTYLINE HYDROCHLORIDE
     Dosage: IN THE EVENING
     Route: 042
     Dates: start: 20240726, end: 20240730
  10. AMITRIPTYLINE HYDROCHLORIDE [Suspect]
     Active Substance: AMITRIPTYLINE HYDROCHLORIDE
     Dosage: IN THE EVENING
     Route: 042
     Dates: start: 20240723, end: 20240725
  11. LOVENOX [Suspect]
     Active Substance: ENOXAPARIN SODIUM
     Dosage: IN THE EVENING
     Route: 065
  12. LEUCOVORIN [Suspect]
     Active Substance: LEUCOVORIN\LEUCOVORIN CALCIUM
     Route: 065
  13. INSULIN GLARGINE [Suspect]
     Active Substance: INSULIN GLARGINE
     Route: 065

REACTIONS (1)
  - Superficial vein thrombosis [Unknown]
